FAERS Safety Report 15064650 (Version 1)
Quarter: 2018Q2

REPORT INFORMATION
  Report Type: Spontaneous
  Country: US (occurrence: US)
  Receive Date: 20180625
  Receipt Date: 20180625
  Transmission Date: 20180711
  Serious: No
  Sender: FDA-Public Use
  Company Number: US-AMGEN-USASP2016071521

PATIENT
  Sex: Female

DRUGS (1)
  1. REPATHA [Suspect]
     Active Substance: EVOLOCUMAB
     Indication: HYPERCHOLESTEROLAEMIA
     Dosage: 140 MG/ML, Q2WK
     Route: 065
     Dates: start: 20160226

REACTIONS (4)
  - Myalgia [Recovered/Resolved]
  - Rhinorrhoea [Recovered/Resolved]
  - Groin pain [Recovered/Resolved]
  - Fatigue [Recovered/Resolved]

NARRATIVE: CASE EVENT DATE: 201605
